FAERS Safety Report 10137027 (Version 1)
Quarter: 2014Q2

REPORT INFORMATION
  Report Type: Spontaneous
  Country: US (occurrence: None)
  Receive Date: 20140428
  Receipt Date: 20140428
  Transmission Date: 20141212
  Serious: Yes (Other)
  Sender: FDA-Public Use
  Company Number: None

PATIENT
  Age: 50 Year
  Sex: Female
  Weight: 86.18 kg

DRUGS (1)
  1. PLAQUENIL [Suspect]
     Indication: SCLERODERMA
     Route: 048
     Dates: start: 20120401, end: 20140425

REACTIONS (9)
  - Abdominal pain upper [None]
  - Nausea [None]
  - Vomiting [None]
  - Diarrhoea [None]
  - Myalgia [None]
  - Musculoskeletal stiffness [None]
  - Pain [None]
  - Inflammation [None]
  - Impaired work ability [None]
